FAERS Safety Report 7555668-8 (Version None)
Quarter: 2011Q2

REPORT INFORMATION
  Report Type: 
  Country: None (occurrence: None)
  Receive Date: 20110617
  Receipt Date: 20080818
  Transmission Date: 20111010
  Serious: Yes (Other)
  Sender: FDA-Public Use
  Company Number: PHHY2008US15525

PATIENT
  Sex: Male
  Weight: 85 kg

DRUGS (16)
  1. EXJADE [Suspect]
     Indication: SICKLE CELL ANAEMIA
     Dosage: 500 MG, QD
     Route: 048
     Dates: start: 20080804
  2. AMBIEN [Concomitant]
     Indication: SLEEP DISORDER
     Dosage: 12.5 MG, QHS
     Route: 048
  3. AMBIEN [Concomitant]
     Dosage: 10 MG, QHS
     Route: 048
  4. DILTIAZEM HYDROCHLORIDE [Concomitant]
     Dosage: 120 MG, BID
     Route: 048
  5. METOPROLOL TARTRATE [Concomitant]
     Dosage: 50 MG, BID
     Route: 048
  6. EXJADE [Suspect]
     Indication: IRON METABOLISM DISORDER
     Dosage: 500 MG, BID
     Route: 048
     Dates: start: 20080501, end: 20080801
  7. NEXIUM [Concomitant]
     Dosage: 40 MG, QD
     Route: 048
  8. COUMADIN [Concomitant]
     Dosage: 2.5 MG, QD
     Route: 048
  9. ATIVAN [Concomitant]
     Indication: INSOMNIA
     Dosage: 1 MG, QHS
     Route: 048
  10. METHADONE HYDROCHLORIDE [Concomitant]
     Dosage: 10 MG ONE TO THREE Q8 HR
     Route: 048
  11. FLONASE [Concomitant]
     Dosage: 50 UG, QD
     Route: 045
  12. MORPHINE SULFATE [Concomitant]
     Dosage: 50 MG, UNK
     Route: 048
  13. MS CONTIN [Concomitant]
     Dosage: 30 MG, QD
     Route: 048
  14. RYTHMOL [Concomitant]
     Dosage: 150 MG, TID
     Route: 048
  15. METHADONE HYDROCHLORIDE [Concomitant]
     Dosage: 10 MG, Q8H
     Route: 048
  16. LUNESTA [Concomitant]
     Indication: SLEEP DISORDER
     Dosage: 2 MG, QHS
     Route: 048

REACTIONS (2)
  - GLAUCOMA [None]
  - VISION BLURRED [None]
